FAERS Safety Report 12427035 (Version 1)
Quarter: 2016Q2

REPORT INFORMATION
  Report Type: Spontaneous
  Country: DE (occurrence: DE)
  Receive Date: 20160601
  Receipt Date: 20160601
  Transmission Date: 20160815
  Serious: Yes (Hospitalization, Other)
  Sender: FDA-Public Use
  Company Number: DE-HQ SPECIALTY-DE-2016INT000305

PATIENT
  Age: 74 Year
  Sex: Male

DRUGS (3)
  1. CISPLATIN. [Suspect]
     Active Substance: CISPLATIN
     Dosage: REDUCED DOSE
     Route: 042
  2. CISPLATIN. [Suspect]
     Active Substance: CISPLATIN
     Indication: NEUROENDOCRINE CARCINOMA
     Dosage: 80 MG/M2 (50%), ADMINISTERED INTRAVENOUSLY OVER A TIME PERIOD OF 2 H
     Route: 042
  3. CISPLATIN. [Suspect]
     Active Substance: CISPLATIN
     Dosage: DOSE INCREASED TO 100%
     Route: 042

REACTIONS (6)
  - Nausea [Unknown]
  - Hypokalaemia [Unknown]
  - Dehydration [Unknown]
  - Pneumonia klebsiella [Unknown]
  - Vomiting [Unknown]
  - Renal impairment [Unknown]
